FAERS Safety Report 19933202 (Version 2)
Quarter: 2021Q4

REPORT INFORMATION
  Report Type: Spontaneous
  Country: US (occurrence: US)
  Receive Date: 20211008
  Receipt Date: 20211102
  Transmission Date: 20220304
  Serious: No
  Sender: FDA-Public Use
  Company Number: US-PFIZER INC-202101180085

PATIENT
  Age: 9 Month
  Sex: Male
  Weight: 8.62 kg

DRUGS (3)
  1. GENOTROPIN [Suspect]
     Active Substance: SOMATROPIN
     Indication: Hypopituitarism
     Dosage: 0.2 MG, CYCLIC (INJECTED NIGHTLY)
     Dates: start: 202107
  2. HYDROCORTISONE [Concomitant]
     Active Substance: HYDROCORTISONE
     Indication: Hypopituitarism
     Dosage: 2.5 MG AT 6AM AND THEN AT 2PM HE GETS 1.25 MG AND AT 10PM, HE GETS ANOTHER 1.25MG (CRUSHED TABLET)
     Route: 048
     Dates: start: 202011
  3. SYNTHROID [Concomitant]
     Active Substance: LEVOTHYROXINE SODIUM
     Indication: Hypothyroidism
     Dosage: 37.5 UG, DAILY
     Dates: start: 202011

REACTIONS (4)
  - Device leakage [Unknown]
  - Incorrect dose administered by device [Unknown]
  - Wrong technique in device usage process [Unknown]
  - Off label use [Unknown]
